FAERS Safety Report 7184017-2 (Version None)
Quarter: 2010Q4

REPORT INFORMATION
  Report Type: 
  Country: None (occurrence: None)
  Receive Date: 20101123
  Receipt Date: 20100824
  Transmission Date: 20110411
  Serious: No
  Sender: FDA-Public Use
  Company Number: 017730

PATIENT
  Sex: Male

DRUGS (1)
  1. CIMZIA [Suspect]
     Indication: CROHN'S DISEASE
     Dosage: (400 MG 1X/26 DAYS SUBCUTANEOUS)
     Route: 058
     Dates: start: 20100722

REACTIONS (3)
  - CROHN'S DISEASE [None]
  - DIZZINESS [None]
  - HYPOTENSION [None]
